FAERS Safety Report 4347566-8 (Version None)
Quarter: 2004Q1

REPORT INFORMATION
  Report Type: 
  Country: None (occurrence: None)
  Receive Date: 20040325
  Receipt Date: 20040128
  Transmission Date: 20041129
  Serious: No
  Sender: FDA-Public Use
  Company Number: USA040157787

PATIENT
  Age: 78 Year
  Sex: Female
  Weight: 36 kg

DRUGS (8)
  1. FORTEO [Suspect]
     Indication: OSTEOPOROSIS
     Dates: start: 20031111
  2. ACETAMINOPHEN AND HYDROCODONE BITARTRATE [Concomitant]
  3. PROPOXYPHENE NAPSYLATE W/ ACETAMINOPHEN [Concomitant]
  4. ZOCOR [Concomitant]
  5. ZYRTEC [Concomitant]
  6. CALCIUM [Concomitant]
  7. GLUCOSAMINE [Concomitant]
  8. NEXIUM [Concomitant]

REACTIONS (3)
  - ARTHRALGIA [None]
  - PAIN IN EXTREMITY [None]
  - TOOTH ABSCESS [None]
